FAERS Safety Report 22181682 (Version 2)
Quarter: 2023Q2

REPORT INFORMATION
  Report Type: Spontaneous
  Country: US (occurrence: US)
  Receive Date: 20230406
  Receipt Date: 20230531
  Transmission Date: 20230721
  Serious: No
  Sender: FDA-Public Use
  Company Number: US-PHOTOCURE ASA-PHCUS2023000001

PATIENT

DRUGS (1)
  1. CYSVIEW [Suspect]
     Active Substance: HEXAMINOLEVULINATE HYDROCHLORIDE
     Dosage: UNK UNK, ONCE
     Route: 043

REACTIONS (2)
  - Burning sensation [Recovered/Resolved]
  - Medication error [Recovered/Resolved]
